FAERS Safety Report 6979538-9 (Version None)
Quarter: 2010Q3

REPORT INFORMATION
  Report Type: 
  Country: None (occurrence: None)
  Receive Date: 20100913
  Receipt Date: 20100903
  Transmission Date: 20110219
  Serious: Yes (Other)
  Sender: FDA-Public Use
  Company Number: PHHY2010US59204

PATIENT
  Sex: Male

DRUGS (3)
  1. EXTAVIA [Suspect]
     Indication: MULTIPLE SCLEROSIS
     Dosage: 0.25 MG, QOD
     Route: 058
     Dates: start: 20100526
  2. OXYCODONE [Concomitant]
     Dosage: UNK,UNK
  3. ZOLOFT [Concomitant]
     Dosage: UNK,UNK

REACTIONS (3)
  - DEPRESSED MOOD [None]
  - DYSPNOEA [None]
  - SOMNOLENCE [None]
